FAERS Safety Report 12317326 (Version 2)
Quarter: 2016Q2

REPORT INFORMATION
  Report Type: Spontaneous
  Country: GB (occurrence: GB)
  Receive Date: 20160429
  Receipt Date: 20160610
  Transmission Date: 20160815
  Serious: Yes (Other)
  Sender: FDA-Public Use
  Company Number: GB-SA-2016SA084084

PATIENT
  Sex: Male

DRUGS (10)
  1. SPIRONOLACTONE. [Concomitant]
     Active Substance: SPIRONOLACTONE
  2. PREGABALIN. [Concomitant]
     Active Substance: PREGABALIN
     Dosage: 1-3X DAILY AS REQUIRED
  3. TEGRETOL [Concomitant]
     Active Substance: CARBAMAZEPINE
     Dosage: 200MG MORNING AND 100MG AT NIGHT
  4. TRIMETHOPRIM. [Concomitant]
     Active Substance: TRIMETHOPRIM
     Indication: PROPHYLAXIS
  5. PARACETAMOL [Concomitant]
     Active Substance: ACETAMINOPHEN
  6. PERINDOPRIL [Concomitant]
     Active Substance: PERINDOPRIL
  7. FUROSEMIDE. [Concomitant]
     Active Substance: FUROSEMIDE
  8. FABRAZYME [Suspect]
     Active Substance: AGALSIDASE BETA
     Indication: FABRY^S DISEASE
     Route: 041
  9. WARFARIN [Concomitant]
     Active Substance: WARFARIN
     Dosage: 5-6 MG DAILY VARIABLE
  10. BISOPROLOL [Concomitant]
     Active Substance: BISOPROLOL

REACTIONS (1)
  - Urinary tract infection [Unknown]

NARRATIVE: CASE EVENT DATE: 2015
